FAERS Safety Report 17677977 (Version 1)
Quarter: 2020Q2

REPORT INFORMATION
  Report Type: Spontaneous
  Country: US (occurrence: US)
  Receive Date: 20200417
  Receipt Date: 20200417
  Transmission Date: 20200714
  Serious: No
  Sender: FDA-Public Use
  Company Number: US-GLENMARK PHARMACEUTICALS-2020GMK046356

PATIENT

DRUGS (1)
  1. NORETHINDRONE ACETATE AND ETHINYL ESTRADIOL TABLETS USP AND FERROUS [Suspect]
     Active Substance: ETHINYL ESTRADIOL\FERROUS FUMARATE\NORETHINDRONE ACETATE
     Indication: ORAL CONTRACEPTION
     Dosage: 1 DOSAGE FORM, QD
     Route: 048
     Dates: start: 20200209, end: 2020

REACTIONS (2)
  - Hypersensitivity [Recovered/Resolved]
  - Product substitution issue [Unknown]
